FAERS Safety Report 18996695 (Version 1)
Quarter: 2021Q1

REPORT INFORMATION
  Report Type: Spontaneous
  Country: US (occurrence: US)
  Receive Date: 20210311
  Receipt Date: 20210311
  Transmission Date: 20210420
  Serious: No
  Sender: FDA-Public Use
  Company Number: None

PATIENT
  Sex: Female

DRUGS (1)
  1. NOVANTRONE [Suspect]
     Active Substance: MITOXANTRONE HYDROCHLORIDE

REACTIONS (1)
  - Cardiac disorder [None]
